FAERS Safety Report 21424131 (Version 1)
Quarter: 2022Q4

REPORT INFORMATION
  Report Type: Spontaneous
  Country: US (occurrence: US)
  Receive Date: 20221007
  Receipt Date: 20221007
  Transmission Date: 20230113
  Serious: Yes (Other)
  Sender: FDA-Public Use
  Company Number: US-MYLANLABS-2022M1111886

PATIENT
  Age: 57 Year
  Sex: Male

DRUGS (6)
  1. CARBOPLATIN [Suspect]
     Active Substance: CARBOPLATIN
     Indication: Mucoepidermoid carcinoma of salivary gland
     Dosage: UNK
     Route: 065
  2. CARBOPLATIN [Suspect]
     Active Substance: CARBOPLATIN
     Indication: Metastatic salivary gland cancer
  3. PACLITAXEL [Suspect]
     Active Substance: PACLITAXEL
     Indication: Mucoepidermoid carcinoma of salivary gland
     Dosage: UNK
     Route: 065
  4. PACLITAXEL [Suspect]
     Active Substance: PACLITAXEL
     Indication: Metastatic salivary gland cancer
  5. GEMCITABINE [Suspect]
     Active Substance: GEMCITABINE
     Indication: Mucoepidermoid carcinoma of salivary gland
     Dosage: UNK
     Route: 065
  6. GEMCITABINE [Suspect]
     Active Substance: GEMCITABINE
     Indication: Metastatic salivary gland cancer

REACTIONS (2)
  - Drug ineffective [Unknown]
  - Disease progression [Unknown]
